FAERS Safety Report 17582296 (Version 1)
Quarter: 2020Q1

REPORT INFORMATION
  Report Type: Spontaneous
  Country: US (occurrence: US)
  Receive Date: 20200325
  Receipt Date: 20200325
  Transmission Date: 20200409
  Serious: No
  Sender: FDA-Public Use
  Company Number: US-ELI_LILLY_AND_COMPANY-US202003010404

PATIENT
  Age: 70 Year
  Sex: Female

DRUGS (2)
  1. NARATRIPTAN HCL [Concomitant]
     Active Substance: NARATRIPTAN HYDROCHLORIDE
     Indication: MIGRAINE PROPHYLAXIS
     Dosage: 2.5 MG, UNKNOWN
  2. EMGALITY [Suspect]
     Active Substance: GALCANEZUMAB-GNLM
     Indication: MIGRAINE PROPHYLAXIS
     Dosage: 120 MG, MONTHLY (1/M)
     Route: 058
     Dates: start: 20200304

REACTIONS (1)
  - Dyspnoea [Unknown]

NARRATIVE: CASE EVENT DATE: 20200313
